FAERS Safety Report 8044602-2 (Version None)
Quarter: 2012Q1

REPORT INFORMATION
  Report Type: 
  Country: None (occurrence: None)
  Receive Date: 20120113
  Receipt Date: 20120113
  Transmission Date: 20120608
  Serious: No
  Sender: FDA-Public Use
  Company Number: None

PATIENT
  Sex: Female
  Weight: 104.32 kg

DRUGS (1)
  1. EXCEDRIN (MIGRAINE) [Suspect]
     Indication: MIGRAINE
     Dosage: 500MG
     Route: 048
     Dates: start: 20120105, end: 20120105

REACTIONS (2)
  - URTICARIA [None]
  - PRODUCT QUALITY ISSUE [None]
